FAERS Safety Report 5602267-0 (Version None)
Quarter: 2008Q1

REPORT INFORMATION
  Report Type: 
  Country: None (occurrence: None)
  Receive Date: 20080125
  Receipt Date: 20080112
  Transmission Date: 20080703
  Serious: Yes (Hospitalization, Other)
  Sender: FDA-Public Use
  Company Number: US-AMGEN-QUU260564

PATIENT
  Sex: Female

DRUGS (2)
  1. ENBREL [Suspect]
     Indication: PSORIATIC ARTHROPATHY
     Route: 058
     Dates: start: 20010401
  2. METHOTREXATE [Concomitant]
     Dates: start: 20010401

REACTIONS (4)
  - CHEST PAIN [None]
  - COLONIC POLYP [None]
  - HYPOTENSION [None]
  - RECTAL HAEMORRHAGE [None]
